FAERS Safety Report 20510220 (Version 1)
Quarter: 2022Q1

REPORT INFORMATION
  Report Type: Spontaneous
  Country: US (occurrence: US)
  Receive Date: 20220224
  Receipt Date: 20220224
  Transmission Date: 20220423
  Serious: No
  Sender: FDA-Public Use
  Company Number: US-GLAXOSMITHKLINE-US2022AMR033750

PATIENT
  Sex: Female

DRUGS (3)
  1. BENLYSTA [Suspect]
     Active Substance: BELIMUMAB
     Indication: Chronic inflammatory demyelinating polyradiculoneuropathy
     Dosage: 200 MG/ML,EVERY 7 DAYS
     Route: 058
  2. BENLYSTA [Suspect]
     Active Substance: BELIMUMAB
     Indication: Systemic lupus erythematosus
  3. BENLYSTA [Suspect]
     Active Substance: BELIMUMAB
     Indication: Infertility tests

REACTIONS (2)
  - Nausea [Unknown]
  - Migraine [Unknown]
